FAERS Safety Report 15256747 (Version 2)
Quarter: 2018Q3

REPORT INFORMATION
  Report Type: Report from Study
  Country: CO (occurrence: CO)
  Receive Date: 20180808
  Receipt Date: 20180822
  Transmission Date: 20181010
  Serious: Yes (Hospitalization)
  Sender: FDA-Public Use
  Company Number: PHHY2018CO067262

PATIENT
  Sex: Female
  Weight: 16 kg

DRUGS (3)
  1. CARBAMAZEPINE. [Suspect]
     Active Substance: CARBAMAZEPINE
     Indication: PRODUCT USED FOR UNKNOWN INDICATION
     Dosage: 5 MG, Q8H
     Route: 048
  2. JADENU [Suspect]
     Active Substance: DEFERASIROX
     Indication: THALASSAEMIA
     Dosage: 180 MG, QD
     Route: 048
     Dates: start: 20180530
  3. FOLIC ACID. [Concomitant]
     Active Substance: FOLIC ACID
     Indication: ANAEMIA
     Dosage: 1 MG, QD
     Route: 065

REACTIONS (7)
  - Paralysis [Unknown]
  - Diplegia [Not Recovered/Not Resolved]
  - Headache [Unknown]
  - Hemiplegia [Not Recovered/Not Resolved]
  - Moyamoya disease [Unknown]
  - Aphasia [Not Recovered/Not Resolved]
  - Drug administered to patient of inappropriate age [Unknown]
